FAERS Safety Report 4490744-8 (Version None)
Quarter: 2004Q4

REPORT INFORMATION
  Report Type: 
  Country: None (occurrence: None)
  Receive Date: 20041027
  Receipt Date: 20041015
  Transmission Date: 20050328
  Serious: Yes (Life-Threatening, Hospitalization)
  Sender: FDA-Public Use
  Company Number: 25412

PATIENT
  Age: 53 Year
  Sex: Male

DRUGS (3)
  1. FLECAINE (ORAL) (FLECAINIDE ACETATE) [Suspect]
     Indication: ATRIAL FIBRILLATION
     Dosage: 300 MG (150 MG, 2 IN 1 DAY (S) ) ORAL; 150 MG (50 MG, 3 IN 1 DAY(S) ) ORAL
     Route: 048
     Dates: start: 20041015
  2. FLECAINE (ORAL) (FLECAINIDE ACETATE) [Suspect]
     Indication: ATRIAL FIBRILLATION
     Dosage: 300 MG (150 MG, 2 IN 1 DAY (S) ) ORAL; 150 MG (50 MG, 3 IN 1 DAY(S) ) ORAL
     Route: 048
     Dates: start: 20041020
  3. DIGOXIN [Concomitant]

REACTIONS (5)
  - ELECTROCARDIOGRAM QRS COMPLEX PROLONGED [None]
  - OVERDOSE [None]
  - SELF-MEDICATION [None]
  - SYNCOPE [None]
  - VENTRICULAR TACHYCARDIA [None]
